FAERS Safety Report 21783165 (Version 1)
Quarter: 2022Q4

REPORT INFORMATION
  Report Type: Report from Study
  Country: US (occurrence: US)
  Receive Date: 20221227
  Receipt Date: 20221227
  Transmission Date: 20230113
  Serious: No
  Sender: FDA-Public Use
  Company Number: US-ABBVIE-4214038

PATIENT
  Age: 72 Year
  Sex: Male

DRUGS (1)
  1. HUMIRA [Suspect]
     Active Substance: ADALIMUMAB
     Indication: Uveitis
     Dosage: CF, STRENGTH: 40 MG
     Route: 058

REACTIONS (2)
  - Therapeutic response unexpected [Unknown]
  - Renal disorder [Unknown]

NARRATIVE: CASE EVENT DATE: 20220901
